FAERS Safety Report 6413596-5 (Version None)
Quarter: 2009Q4

REPORT INFORMATION
  Report Type: 
  Country: None (occurrence: None)
  Receive Date: 20091026
  Receipt Date: 20091015
  Transmission Date: 20100525
  Serious: Yes (Hospitalization)
  Sender: FDA-Public Use
  Company Number: DE-ABBOTT-09P-062-0603458-00

PATIENT
  Sex: Female
  Weight: 110 kg

DRUGS (20)
  1. HUMIRA [Suspect]
     Indication: POLYARTHRITIS
  2. PREDNISOLONE [Concomitant]
     Indication: POLYARTHRITIS
     Route: 048
  3. RAMIPRIL [Concomitant]
     Indication: HYPERTENSION
  4. FUROSEMIDE [Concomitant]
     Indication: HYPERTENSION
  5. TORSEMIDE [Concomitant]
     Indication: HYPERTENSION
  6. PANTOPRAZOLE SODIUM [Concomitant]
     Indication: PROPHYLAXIS AGAINST GASTROINTESTINAL ULCER
  7. AMLODIPINE [Concomitant]
     Indication: HYPERTENSION
  8. SPASMEX [Concomitant]
     Indication: DRUG USE FOR UNKNOWN INDICATION
  9. BEZAFIBRATE [Concomitant]
     Indication: HYPERLIPIDAEMIA
  10. TARGIN [Concomitant]
     Indication: PAIN
     Dosage: 10/5
  11. LYRICA [Concomitant]
     Indication: PAIN
  12. NULYTELY [Concomitant]
     Indication: CONSTIPATION
  13. METOCLOPRAMIDE [Concomitant]
     Indication: DRUG USE FOR UNKNOWN INDICATION
  14. TRAMADOL HYDROCHLORIDE [Concomitant]
     Indication: PAIN
  15. METHOTREXATE SODIUM [Concomitant]
     Indication: DRUG USE FOR UNKNOWN INDICATION
     Route: 058
  16. HUMALOG [Concomitant]
     Indication: DIABETES MELLITUS
  17. INSUMAN BASAL [Concomitant]
     Indication: DIABETES MELLITUS
     Dosage: 100 E
  18. INSUMAN RAPID [Concomitant]
     Indication: DIABETES MELLITUS
     Dosage: 46-36-40 IE
  19. FRAGMIN [Concomitant]
     Indication: ANTICOAGULANT THERAPY
     Route: 058
  20. DOXYCILIN [Concomitant]
     Indication: DRUG USE FOR UNKNOWN INDICATION

REACTIONS (2)
  - SPINAL COLUMN STENOSIS [None]
  - SPINAL OSTEOARTHRITIS [None]
